FAERS Safety Report 6562249-1 (Version None)
Quarter: 2010Q1

REPORT INFORMATION
  Report Type: 
  Country: None (occurrence: None)
  Receive Date: 20100130
  Receipt Date: 20091103
  Transmission Date: 20100710
  Serious: No
  Sender: FDA-Public Use
  Company Number: US-ABBOTT-09P-163-0607027-00

PATIENT
  Sex: Female
  Weight: 83.99 kg

DRUGS (7)
  1. HUMIRA [Suspect]
     Indication: RHEUMATOID ARTHRITIS
     Route: 058
     Dates: start: 20090728
  2. METHOTREXATE [Concomitant]
     Indication: RHEUMATOID ARTHRITIS
     Dosage: 2.5MG
     Dates: start: 20090101
  3. METHOTREXATE [Concomitant]
     Dosage: 2.5MG
     Dates: end: 20090101
  4. LISINOPRIL [Concomitant]
     Indication: HYPERTENSION
     Dates: start: 20080101
  5. LISINOPRIL [Concomitant]
     Dates: end: 20080101
  6. LEVOTHYROXINE SODIUM [Concomitant]
     Indication: HYPOTHYROIDISM
     Dates: start: 19990101
  7. PRAVASTATIN SODIUM [Concomitant]
     Indication: BLOOD CHOLESTEROL INCREASED
     Dosage: 1 IN 1 DAY AT NIGHT

REACTIONS (2)
  - HEADACHE [None]
  - VISION BLURRED [None]
